FAERS Safety Report 5410551-9 (Version None)
Quarter: 2007Q3

REPORT INFORMATION
  Report Type: 
  Country: None (occurrence: None)
  Receive Date: 20070810
  Receipt Date: 20070228
  Transmission Date: 20080115
  Serious: No
  Sender: FDA-Public Use
  Company Number: A0641369A

PATIENT
  Sex: Male

DRUGS (3)
  1. PAXIL [Suspect]
     Indication: DEPRESSION
  2. WELLBUTRIN [Suspect]
     Indication: DEPRESSION
  3. LAMICTAL [Concomitant]

REACTIONS (1)
  - DRUG INEFFECTIVE [None]
